FAERS Safety Report 8386000-8 (Version None)
Quarter: 2012Q2

REPORT INFORMATION
  Report Type: 
  Country: None (occurrence: None)
  Receive Date: 20120525
  Receipt Date: 20120522
  Transmission Date: 20120825
  Serious: Yes (Hospitalization)
  Sender: FDA-Public Use
  Company Number: FR-BAYER-2012-051228

PATIENT
  Age: 63 Year
  Sex: Male

DRUGS (12)
  1. ACARBOSE [Suspect]
     Indication: TYPE 2 DIABETES MELLITUS
     Dosage: UNK
     Route: 048
     Dates: start: 20120201, end: 20120417
  2. ALLOPURINOL [Concomitant]
  3. BISOPROLOL FUMARATE [Concomitant]
  4. LASIX [Concomitant]
  5. POTASSIUM CHLORIDE [Concomitant]
  6. EXFORGE [Suspect]
  7. EZETIMIBE [Concomitant]
  8. RENVELA [Concomitant]
  9. PREDNISOLONE [Concomitant]
  10. LEXOMIL [Concomitant]
  11. ASPIRIN [Concomitant]
  12. NEXIUM [Concomitant]

REACTIONS (3)
  - GASTROINTESTINAL DISORDER [None]
  - WEIGHT DECREASED [None]
  - DECREASED APPETITE [None]
